FAERS Safety Report 4815386-3 (Version None)
Quarter: 2005Q4

REPORT INFORMATION
  Report Type: 
  Country: None (occurrence: None)
  Receive Date: 20051027
  Receipt Date: 20051021
  Transmission Date: 20060501
  Serious: Yes (Other)
  Sender: FDA-Public Use
  Company Number: 12193

PATIENT
  Age: 58 Year
  Sex: Male

DRUGS (9)
  1. AREDIA [Suspect]
  2. ZOLEDRONIC ACID [Suspect]
     Indication: METASTATIC NEOPLASM
  3. DOXORUBICIN HCL [Concomitant]
  4. VINCRISTINE [Concomitant]
  5. DEXAMETHASONE [Concomitant]
  6. MELPHALAN [Concomitant]
  7. BUSSULPHAN [Concomitant]
  8. THIOTEPA [Concomitant]
  9. GM-CSF [Concomitant]

REACTIONS (1)
  - OSTEONECROSIS [None]
